FAERS Safety Report 4551442-5 (Version None)
Quarter: 2005Q1

REPORT INFORMATION
  Report Type: 
  Country: None (occurrence: None)
  Receive Date: 20050107
  Receipt Date: 20041228
  Transmission Date: 20050727
  Serious: Yes (Life-Threatening, Hospitalization)
  Sender: FDA-Public Use
  Company Number: 2004121650

PATIENT
  Age: 79 Year
  Sex: Female
  Weight: 69.5 kg

DRUGS (1)
  1. UNACID INJECTION (SULBACTAM, AMPICILLIN) [Suspect]
     Indication: ANTIBACTERIAL PROPHYLAXIS
     Dosage: INTRAVENOUS
     Route: 042

REACTIONS (2)
  - HEPATIC FAILURE [None]
  - HEPATITIS TOXIC [None]
